FAERS Safety Report 22214841 (Version 1)
Quarter: 2023Q2

REPORT INFORMATION
  Report Type: Spontaneous
  Country: US (occurrence: US)
  Receive Date: 20230415
  Receipt Date: 20230415
  Transmission Date: 20230721
  Serious: No
  Sender: FDA-Public Use
  Company Number: US-SA-2023SA115922

PATIENT
  Age: 8 Year
  Sex: Male

DRUGS (2)
  1. ELOCTATE [Suspect]
     Active Substance: EFMOROCTOCOG ALFA
     Dosage: 2200 IU (RANGE OF 2200 TO 2400  UNITS), QD AS NEEDED FOR BLEEDING
     Route: 042
  2. ELOCTATE [Suspect]
     Active Substance: EFMOROCTOCOG ALFA
     Dosage: 2200 IU (RANGE OF 2200 TO 2400  UNITS), QD AS NEEDED FOR BLEEDING
     Route: 042

REACTIONS (1)
  - Head injury [Unknown]

NARRATIVE: CASE EVENT DATE: 20230408
